FAERS Safety Report 13098424 (Version 2)
Quarter: 2017Q1

REPORT INFORMATION
  Report Type: Spontaneous
  Country: JP (occurrence: JP)
  Receive Date: 20170109
  Receipt Date: 20170223
  Transmission Date: 20170428
  Serious: Yes (Hospitalization)
  Sender: FDA-Public Use
  Company Number: JP-JNJFOC-20170104857

PATIENT
  Age: 63 Year
  Sex: Female
  Weight: 86 kg

DRUGS (16)
  1. LANTUS [Concomitant]
     Active Substance: INSULIN GLARGINE
     Indication: TYPE 2 DIABETES MELLITUS
     Route: 051
     Dates: start: 20161031
  2. HEPARIN [Concomitant]
     Active Substance: HEPARIN SODIUM
     Indication: SPINAL COLUMN STENOSIS
     Route: 041
     Dates: start: 20161205
  3. FEBURIC [Concomitant]
     Active Substance: FEBUXOSTAT
     Dosage: STARTED BEFORE ADMINISTRATION OF CANAGLFLOZIN
     Route: 048
     Dates: end: 20161109
  4. LASIX [Concomitant]
     Active Substance: FUROSEMIDE
     Dosage: STARTED BEFORE ADMINISTRATION OF CANAGLFLOZIN
     Route: 048
  5. TAKEPRON [Concomitant]
     Active Substance: LANSOPRAZOLE
     Indication: GASTROINTESTINAL DISORDER
     Dosage: STARTED BEFORE ADMINISTRATION OF CANAGLFLOZIN
     Route: 048
  6. CANAGLU [Suspect]
     Active Substance: CANAGLIFLOZIN
     Indication: TYPE 2 DIABETES MELLITUS
     Route: 048
     Dates: start: 20160606
  7. ALDACTONE [Concomitant]
     Active Substance: SPIRONOLACTONE
     Dosage: STARTED BEFORE ADMINISTRATION OF CANAGLFLOZIN
     Route: 048
  8. AMARYL [Concomitant]
     Active Substance: GLIMEPIRIDE
     Indication: TYPE 2 DIABETES MELLITUS
     Dosage: STARTED BEFORE ADMINISTRATION OF CANAGLFLOZIN
     Route: 048
  9. VICTOZA [Concomitant]
     Active Substance: LIRAGLUTIDE
     Indication: TYPE 2 DIABETES MELLITUS
     Dosage: STARTED BEFORE ADMINISTRATION OF CANAGLFLOZIN
     Route: 058
  10. CRESTOR [Concomitant]
     Active Substance: ROSUVASTATIN CALCIUM
     Dosage: STARTED BEFORE ADMINISTRATION OF CANAGLFLOZIN
     Route: 048
  11. PREMINENT [Concomitant]
     Active Substance: HYDROCHLOROTHIAZIDE\LOSARTAN POTASSIUM
     Dosage: STARTED BEFORE ADMINISTRATION OF CANAGLFLOZIN
     Route: 048
  12. ARTIST [Concomitant]
     Active Substance: CARVEDILOL
     Dosage: STARTED BEFORE ADMINISTRATION OF CANAGLFLOZIN
     Route: 048
  13. WARFARIN [Concomitant]
     Active Substance: WARFARIN
     Dosage: STARTED BEFORE ADMINISTRATION OF CANAGLFLOZIN
     Route: 048
  14. METGLUCO [Concomitant]
     Active Substance: METFORMIN HYDROCHLORIDE
     Indication: TYPE 2 DIABETES MELLITUS
     Dosage: STARTED BEFORE ADMINISTRATION OF CANAGLFLOZIN
     Route: 048
  15. LANTUS [Concomitant]
     Active Substance: INSULIN GLARGINE
     Indication: TYPE 2 DIABETES MELLITUS
     Route: 051
     Dates: start: 20160829, end: 20161030
  16. PLAVIX [Concomitant]
     Active Substance: CLOPIDOGREL BISULFATE
     Dosage: STARTED BEFORE ADMINISTRATION OF CANAGLFLOZIN
     Route: 048

REACTIONS (1)
  - Lumbar spinal stenosis [Recovering/Resolving]

NARRATIVE: CASE EVENT DATE: 20161213
